FAERS Safety Report 20278467 (Version 1)
Quarter: 2022Q1

REPORT INFORMATION
  Report Type: Spontaneous
  Country: US (occurrence: US)
  Receive Date: 20220103
  Receipt Date: 20220103
  Transmission Date: 20220423
  Serious: No
  Sender: FDA-Public Use
  Company Number: US-TEVA-2021-US-1992308

PATIENT
  Age: 5 Year
  Sex: Male
  Weight: 26.76 kg

DRUGS (3)
  1. CLONIDINE HYDROCHLORIDE [Suspect]
     Active Substance: CLONIDINE HYDROCHLORIDE
     Indication: Attention deficit hyperactivity disorder
     Route: 062
     Dates: start: 202111
  2. CLONIDINE HYDROCHLORIDE [Suspect]
     Active Substance: CLONIDINE HYDROCHLORIDE
     Route: 062
     Dates: start: 2021
  3. melatonin gummies [Concomitant]
     Indication: Sleep disorder
     Dosage: AS NEEDED

REACTIONS (10)
  - Application site erythema [Unknown]
  - Irritability [Unknown]
  - Erythema [Unknown]
  - Application site pruritus [Unknown]
  - Dermatitis contact [Not Recovered/Not Resolved]
  - Drug intolerance [Unknown]
  - Wrong technique in product usage process [Unknown]
  - Product adhesion issue [Unknown]
  - Product use issue [Unknown]
  - Product use in unapproved indication [Unknown]

NARRATIVE: CASE EVENT DATE: 20210101
